FAERS Safety Report 7296534-5 (Version None)
Quarter: 2011Q1

REPORT INFORMATION
  Report Type: 
  Country: None (occurrence: None)
  Receive Date: 20110216
  Receipt Date: 20110204
  Transmission Date: 20110831
  Serious: Yes (Hospitalization)
  Sender: FDA-Public Use
  Company Number: PHHO2011GB02844

PATIENT
  Sex: Female

DRUGS (4)
  1. VORICONAZOLE [Concomitant]
  2. EVEROLIMUS [Suspect]
     Indication: ACUTE MYELOID LEUKAEMIA
     Dosage: UNK
     Route: 048
     Dates: start: 20101229, end: 20110117
  3. MORPHINE [Suspect]
  4. ACICLOVIR [Concomitant]

REACTIONS (5)
  - ABDOMINAL PAIN [None]
  - CONSTIPATION [None]
  - DIZZINESS [None]
  - MALAISE [None]
  - ABDOMINAL DISTENSION [None]
